FAERS Safety Report 6073083-3 (Version None)
Quarter: 2009Q1

REPORT INFORMATION
  Report Type: 
  Country: None (occurrence: None)
  Receive Date: 20090211
  Receipt Date: 20090205
  Transmission Date: 20090719
  Serious: Yes (Disabling)
  Sender: FDA-Public Use
  Company Number: FR-JNJFOC-20090201369

PATIENT
  Sex: Male

DRUGS (1)
  1. OFLOCET [Suspect]
     Indication: ENTEROBACTER SEPSIS
     Route: 048

REACTIONS (2)
  - MUSCULOSKELETAL DISCOMFORT [None]
  - TENDONITIS [None]
